FAERS Safety Report 19561337 (Version 4)
Quarter: 2021Q3

REPORT INFORMATION
  Report Type: Report from Study
  Country: JP (occurrence: JP)
  Receive Date: 20210716
  Receipt Date: 20210928
  Transmission Date: 20211014
  Serious: Yes (Hospitalization, Other)
  Sender: FDA-Public Use
  Company Number: JP-ROCHE-2849841

PATIENT
  Age: 56 Year
  Sex: Female
  Weight: 54.7 kg

DRUGS (29)
  1. IRINOTECAN HYDROCHLORIDE. [Suspect]
     Active Substance: IRINOTECAN HYDROCHLORIDE
     Indication: COLON CANCER
     Route: 041
     Dates: start: 20210524
  2. ELPLAT [Suspect]
     Active Substance: OXALIPLATIN
     Route: 041
     Dates: start: 20210628, end: 20210628
  3. 5?FU [Concomitant]
     Active Substance: FLUOROURACIL
     Indication: COLON CANCER
     Dosage: UNK
     Route: 040
     Dates: start: 20210524
  4. PALONOSETRON HYDROCHLORIDE. [Concomitant]
     Active Substance: PALONOSETRON HYDROCHLORIDE
     Route: 042
     Dates: start: 20210628
  5. APREPITANT. [Concomitant]
     Active Substance: APREPITANT
     Dosage: ORAL DRUG UNSPECIFIED FORM
     Route: 048
     Dates: start: 20210628
  6. MAGMITT [Concomitant]
     Active Substance: MAGNESIUM OXIDE
     Indication: CONSTIPATION
     Route: 048
  7. DEXAMETHASONE SODIUM PHOSPHATE. [Concomitant]
     Active Substance: DEXAMETHASONE SODIUM PHOSPHATE
     Route: 042
     Dates: start: 20210628
  8. BEVACIZUMAB. [Suspect]
     Active Substance: BEVACIZUMAB
     Indication: COLON CANCER
     Route: 041
     Dates: start: 20210524, end: 20210524
  9. BEVACIZUMAB. [Suspect]
     Active Substance: BEVACIZUMAB
     Route: 041
     Dates: start: 20210628, end: 20210628
  10. ELPLAT [Suspect]
     Active Substance: OXALIPLATIN
     Indication: COLON CANCER
     Route: 041
     Dates: start: 20210524
  11. LANSOPRAZOLE. [Suspect]
     Active Substance: LANSOPRAZOLE
     Indication: GASTRITIS PROPHYLAXIS
     Route: 048
     Dates: start: 20210408
  12. MUCOSTA [Concomitant]
     Active Substance: REBAMIPIDE
     Indication: GASTRITIS PROPHYLAXIS
     Dosage: 100 MILLIGRAM, TID
     Route: 048
     Dates: end: 20210706
  13. DEXAMETHASONE. [Concomitant]
     Active Substance: DEXAMETHASONE
     Route: 048
     Dates: start: 20210525, end: 20210527
  14. APREPITANT. [Concomitant]
     Active Substance: APREPITANT
     Dosage: 80 MILLIGRAM, ONCE/2WEEKS
     Route: 048
     Dates: start: 20210525, end: 20210526
  15. 5?FU [Concomitant]
     Active Substance: FLUOROURACIL
     Route: 041
     Dates: start: 20210524
  16. 5?FU [Concomitant]
     Active Substance: FLUOROURACIL
     Dosage: UNK
     Route: 040
     Dates: start: 20210524
  17. LEVOFOLINATE [Concomitant]
     Active Substance: LEVOLEUCOVORIN CALCIUM
     Indication: COLON CANCER
     Route: 041
     Dates: start: 20210524
  18. PALONOSETRON HYDROCHLORIDE. [Concomitant]
     Active Substance: PALONOSETRON HYDROCHLORIDE
     Route: 042
     Dates: start: 20210524, end: 20210524
  19. APREPITANT. [Concomitant]
     Active Substance: APREPITANT
     Dosage: ORAL DRUG UNSPECIFIED FORM
     Route: 048
     Dates: start: 20210629
  20. CRESTOR [Concomitant]
     Active Substance: ROSUVASTATIN CALCIUM
     Indication: HYPERCHOLESTEROLAEMIA
     Route: 048
  21. DEPAS [ETIZOLAM] [Concomitant]
     Active Substance: ETIZOLAM
     Indication: INSOMNIA
     Route: 048
  22. LUNESTA [Concomitant]
     Active Substance: ESZOPICLONE
     Indication: INSOMNIA
     Dosage: UNK UNK, QD
     Route: 048
  23. DEXAMETHASONE. [Concomitant]
     Active Substance: DEXAMETHASONE
     Route: 048
     Dates: start: 20210629
  24. IRINOTECAN HYDROCHLORIDE. [Suspect]
     Active Substance: IRINOTECAN HYDROCHLORIDE
     Route: 041
     Dates: start: 20210628, end: 20210628
  25. LEVOFLOXACIN HEMIHYDRATE [Suspect]
     Active Substance: LEVOFLOXACIN
     Indication: INFECTION PROPHYLAXIS
     Route: 048
     Dates: start: 20210524
  26. LEVOFOLINATE [Concomitant]
     Active Substance: LEVOLEUCOVORIN CALCIUM
     Route: 041
     Dates: start: 20210628
  27. DEXAMETHASONE SODIUM PHOSPHATE. [Concomitant]
     Active Substance: DEXAMETHASONE SODIUM PHOSPHATE
     Route: 042
     Dates: start: 20210524, end: 20210524
  28. APREPITANT. [Concomitant]
     Active Substance: APREPITANT
     Route: 048
     Dates: start: 20210524, end: 20210524
  29. LOPERAMIDE HYDROCHLORIDE. [Concomitant]
     Active Substance: LOPERAMIDE HYDROCHLORIDE
     Route: 065

REACTIONS (4)
  - Embolism venous [Unknown]
  - Febrile neutropenia [Recovered/Resolved]
  - Intestinal obstruction [Not Recovered/Not Resolved]
  - Enterococcal infection [Unknown]

NARRATIVE: CASE EVENT DATE: 20210604
